FAERS Safety Report 14123805 (Version 1)
Quarter: 2017Q4

REPORT INFORMATION
  Report Type: Spontaneous
  Country: US (occurrence: US)
  Receive Date: 20171025
  Receipt Date: 20171025
  Transmission Date: 20180321
  Serious: Yes (Other)
  Sender: FDA-Public Use
  Company Number: None

PATIENT
  Age: 37 Year
  Sex: Male
  Weight: 119.25 kg

DRUGS (1)
  1. CLINDAMYCON HCL [Suspect]
     Active Substance: CLINDAMYCIN HYDROCHLORIDE
     Indication: INFECTION
     Dosage: ?          QUANTITY:56 CAPSULE(S);?
     Route: 048

REACTIONS (2)
  - Malaise [None]
  - Somnolence [None]

NARRATIVE: CASE EVENT DATE: 20171025
